FAERS Safety Report 21790248 (Version 1)
Quarter: 2022Q4

REPORT INFORMATION
  Report Type: Spontaneous
  Country: ES (occurrence: ES)
  Receive Date: 20221228
  Receipt Date: 20221228
  Transmission Date: 20230112
  Serious: Yes (Other)
  Sender: FDA-Public Use
  Company Number: None

PATIENT
  Age: 64 Year
  Sex: Female

DRUGS (8)
  1. DOCETAXEL [Suspect]
     Active Substance: DOCETAXEL
     Indication: Breast cancer
     Dosage: (7394A),
     Route: 065
     Dates: start: 20220321, end: 20220705
  2. ZALDIAR [Concomitant]
     Active Substance: ACETAMINOPHEN\TRAMADOL HYDROCHLORIDE
     Indication: Product used for unknown indication
     Dosage: 37.5 MG/325 MG, 20 TABLETS
     Route: 065
     Dates: start: 202207, end: 202207
  3. CANDESARTAN [Concomitant]
     Active Substance: CANDESARTAN
     Indication: Hypertension
     Dosage: EFG TABLETS, 28 TABLETS
     Route: 065
     Dates: start: 20220407
  4. CALCIFEDIOL [Concomitant]
     Active Substance: CALCIFEDIOL
     Indication: Product used for unknown indication
     Dosage: 10 CAPSULES (PVC/PVDC-ALUMINUM BLISTER)
     Route: 065
     Dates: start: 20210311
  5. DEXKETOPROFEN TROMETAMOL [Concomitant]
     Active Substance: DEXKETOPROFEN TROMETAMOL
     Indication: Product used for unknown indication
     Dosage: 20 TABLETS (PVC/AL),
     Route: 065
     Dates: start: 20220407, end: 20220710
  6. CYCLOPHOSPHAMIDE [Concomitant]
     Active Substance: CYCLOPHOSPHAMIDE
     Indication: Breast cancer
     Dosage: (120A),
     Route: 065
     Dates: start: 20220321, end: 20220705
  7. ESOMEPRAZOL SANDOZ [Concomitant]
     Indication: Product used for unknown indication
     Dosage: EFG, 28 TABLETS,
     Route: 065
     Dates: start: 20220318
  8. LEVOTHYROXINE SODIUM [Concomitant]
     Active Substance: LEVOTHYROXINE SODIUM
     Indication: Hypothyroidism
     Dosage: 100 TABLETS
     Route: 065
     Dates: start: 20170222

REACTIONS (1)
  - Urticaria [Recovered/Resolved]

NARRATIVE: CASE EVENT DATE: 20220707
